FAERS Safety Report 21024924 (Version 1)
Quarter: 2022Q2

REPORT INFORMATION
  Report Type: Spontaneous
  Country: US (occurrence: US)
  Receive Date: 20220629
  Receipt Date: 20220629
  Transmission Date: 20220721
  Serious: No
  Sender: FDA-Public Use
  Company Number: US-BoehringerIngelheim-2022-BI-179083

PATIENT
  Age: 57 Year
  Sex: Male

DRUGS (1)
  1. MOBIC [Suspect]
     Active Substance: MELOXICAM
     Indication: Intervertebral disc protrusion
     Dosage: ONCE A DAY
     Dates: start: 20220608, end: 20220626

REACTIONS (2)
  - Off label use [Unknown]
  - Nasal inflammation [Not Recovered/Not Resolved]

NARRATIVE: CASE EVENT DATE: 20220608
